FAERS Safety Report 25462418 (Version 1)
Quarter: 2025Q2

REPORT INFORMATION
  Report Type: Spontaneous
  Country: GB (occurrence: GB)
  Receive Date: 20250620
  Receipt Date: 20250620
  Transmission Date: 20250716
  Serious: Yes (Hospitalization, Disabling, Other)
  Sender: Kenvue
  Company Number: None

PATIENT

DRUGS (1)
  1. ACETAMINOPHEN [Suspect]
     Active Substance: ACETAMINOPHEN
     Indication: Pain
     Route: 065

REACTIONS (5)
  - Brain injury [Unknown]
  - Heart rate increased [Unknown]
  - Pain [Unknown]
  - Chills [Unknown]
  - Prescribed overdose [Unknown]
